FAERS Safety Report 10246554 (Version 3)
Quarter: 2014Q2

REPORT INFORMATION
  Report Type: Report from Study
  Country: FR (occurrence: FR)
  Receive Date: 20140619
  Receipt Date: 20140627
  Transmission Date: 20141212
  Serious: Yes (Death, Other)
  Sender: FDA-Public Use
  Company Number: FR-VERTEX PHARMACEUTICALS (CANADA)-2014-002779

PATIENT
  Age: 55 Year
  Sex: Male

DRUGS (4)
  1. VX-950 (TELAPREVIR) [Suspect]
     Indication: HEPATITIS C
     Dosage: 750 MG, TID
     Route: 048
     Dates: start: 20110819, end: 20111017
  2. PEGASYS [Suspect]
     Indication: HEPATITIS C
     Dosage: 180 ?G, QW
     Route: 065
     Dates: start: 20110819, end: 20111017
  3. COPEGUS [Suspect]
     Indication: HEPATITIS C
     Dosage: 1200 MG, QD
     Route: 065
     Dates: start: 20110819, end: 20111017
  4. NEORECORMON [Suspect]
     Indication: ANAEMIA
     Dosage: DOSAGE FORM: UNSPECIFIED
     Route: 065
     Dates: start: 20110920, end: 20111017

REACTIONS (2)
  - Hepatic failure [Fatal]
  - Hepatocellular carcinoma [Not Recovered/Not Resolved]
